FAERS Safety Report 6657870-6 (Version None)
Quarter: 2010Q1

REPORT INFORMATION
  Report Type: 
  Country: None (occurrence: None)
  Receive Date: 20100330
  Receipt Date: 20100319
  Transmission Date: 20100710
  Serious: Yes (Other)
  Sender: FDA-Public Use
  Company Number: JP-JNJFOC-20100304255

PATIENT
  Sex: Female
  Weight: 55 kg

DRUGS (10)
  1. REMICADE [Suspect]
     Indication: RHEUMATOID ARTHRITIS
     Route: 042
  2. PREDNISOLONE [Concomitant]
     Indication: RHEUMATOID ARTHRITIS
  3. ULCERLMIN [Concomitant]
     Route: 048
  4. SELBEX [Concomitant]
     Route: 048
  5. LANSOPRAZOLE [Concomitant]
     Route: 048
  6. ONEALFA [Concomitant]
     Route: 048
  7. METHYCOBAL [Concomitant]
     Route: 048
  8. ALOSENN [Concomitant]
     Route: 048
  9. BENZALIN [Concomitant]
     Route: 048
  10. FOSAMAC [Concomitant]

REACTIONS (2)
  - ATONIC SEIZURES [None]
  - MUSCULAR WEAKNESS [None]
